FAERS Safety Report 6103995-3 (Version None)
Quarter: 2009Q1

REPORT INFORMATION
  Report Type: 
  Country: None (occurrence: None)
  Receive Date: 20090305
  Receipt Date: 20090225
  Transmission Date: 20090719
  Serious: Yes (Other)
  Sender: FDA-Public Use
  Company Number: FR-MERCK-0903USA00437

PATIENT
  Age: 65 Year
  Sex: Male

DRUGS (6)
  1. SINEMET CR [Suspect]
     Route: 048
     Dates: start: 20080101
  2. SINEMET CR [Suspect]
     Route: 048
     Dates: start: 20060101
  3. TRIVASTAL [Suspect]
     Route: 048
     Dates: start: 20040101, end: 20090101
  4. RIVOTRIL [Concomitant]
     Route: 065
     Dates: start: 20080101
  5. OMEPRAZOLE [Concomitant]
     Route: 065
     Dates: start: 20080101
  6. GLIMEPIRIDE [Concomitant]
     Route: 065
     Dates: start: 20060101

REACTIONS (1)
  - PATHOLOGICAL GAMBLING [None]
